FAERS Safety Report 4938806-2 (Version None)
Quarter: 2006Q1

REPORT INFORMATION
  Report Type: 
  Country: None (occurrence: None)
  Receive Date: 20060306
  Receipt Date: 20060221
  Transmission Date: 20060701
  Serious: Yes (Other)
  Sender: FDA-Public Use
  Company Number: 2002-07-2888

PATIENT
  Age: 6 Month
  Sex: Male

DRUGS (1)
  1. ELOCON [Suspect]
     Indication: DERMATITIS ATOPIC
     Dosage: 0.1 % DAILY TOP-DERM
     Dates: start: 19981201

REACTIONS (2)
  - DRUG ADMINISTRATION ERROR [None]
  - GROWTH RETARDATION [None]
